FAERS Safety Report 22258294 (Version 1)
Quarter: 2023Q2

REPORT INFORMATION
  Report Type: Spontaneous
  Country: JP (occurrence: JP)
  Receive Date: 20230427
  Receipt Date: 20230427
  Transmission Date: 20230722
  Serious: Yes (Other)
  Sender: FDA-Public Use
  Company Number: JP-SUN PHARMACEUTICAL INDUSTRIES LTD-2023R1-384641

PATIENT
  Age: 35 Year
  Sex: Male

DRUGS (4)
  1. METHOTREXATE [Suspect]
     Active Substance: METHOTREXATE
     Indication: Headache
     Dosage: 10 GRAM, DAILY
     Route: 065
  2. METHOTREXATE [Suspect]
     Active Substance: METHOTREXATE
     Indication: Altered state of consciousness
  3. METHOTREXATE [Suspect]
     Active Substance: METHOTREXATE
     Indication: Seizure
  4. METHYLPREDNISOLONE [Suspect]
     Active Substance: METHYLPREDNISOLONE
     Indication: Altered state of consciousness
     Dosage: 1 GRAM, DAILY
     Route: 065

REACTIONS (1)
  - Drug ineffective [Unknown]
